FAERS Safety Report 6140660-0 (Version None)
Quarter: 2009Q1

REPORT INFORMATION
  Report Type: 
  Country: None (occurrence: None)
  Receive Date: 20090331
  Receipt Date: 20090320
  Transmission Date: 20090719
  Serious: Yes (Death, Other)
  Sender: FDA-Public Use
  Company Number: ADE2009-0497

PATIENT
  Age: 62 Year
  Sex: Female

DRUGS (4)
  1. MIRTAZAPINE [Suspect]
  2. HYDROCODONE BITARTRATE [Suspect]
  3. QUETIAPINE FUMARATE [Suspect]
  4. DIPHENHYDRAMINE HCL [Suspect]

REACTIONS (2)
  - PULMONARY CONGESTION [None]
  - PULMONARY OEDEMA [None]
